FAERS Safety Report 7081852-6 (Version None)
Quarter: 2010Q4

REPORT INFORMATION
  Report Type: 
  Country: None (occurrence: None)
  Receive Date: 20101103
  Receipt Date: 20101021
  Transmission Date: 20110411
  Serious: Yes (Life-Threatening, Hospitalization, Other)
  Sender: FDA-Public Use
  Company Number: JP-AMGEN-QUU444361

PATIENT

DRUGS (6)
  1. ENBREL [Suspect]
     Indication: RHEUMATOID ARTHRITIS
     Dosage: 50 MG, QWK
     Route: 058
     Dates: start: 20061017
  2. ENBREL [Suspect]
     Dosage: 50 MG, QWK
     Route: 058
     Dates: end: 20090908
  3. RIMATIL [Concomitant]
     Indication: RHEUMATOID ARTHRITIS
     Dosage: 200 MG/DAY
     Route: 048
  4. AZULFIDINE [Concomitant]
     Dosage: 1000 MG/DAY
     Route: 048
     Dates: end: 20061201
  5. PREDNISOLONE [Concomitant]
     Indication: RHEUMATOID ARTHRITIS
     Dosage: 10 MG/DAY
     Route: 048
  6. PREDNISOLONE [Concomitant]
     Dosage: 20 MG/DAY
     Route: 048

REACTIONS (2)
  - EXTRANODAL MARGINAL ZONE B-CELL LYMPHOMA (MALT TYPE) [None]
  - INTESTINAL OBSTRUCTION [None]
